FAERS Safety Report 4526004-6 (Version None)
Quarter: 2004Q4

REPORT INFORMATION
  Report Type: 
  Country: None (occurrence: None)
  Receive Date: 20041213
  Receipt Date: 20041213
  Transmission Date: 20050328
  Serious: Yes (Other)
  Sender: FDA-Public Use
  Company Number: None

PATIENT
  Sex: Male
  Weight: 102.0593 kg

DRUGS (3)
  1. EFFEXOR XR [Suspect]
     Indication: DEPRESSION
     Dosage: 150MG   DAILY   ORAL
     Route: 048
     Dates: start: 20040701, end: 20041210
  2. EFFEXOR XR [Suspect]
     Indication: OBSESSIVE-COMPULSIVE DISORDER
     Dosage: 150MG   DAILY   ORAL
     Route: 048
     Dates: start: 20040701, end: 20041210
  3. GABITRIL [Concomitant]

REACTIONS (6)
  - ABNORMAL DREAMS [None]
  - CEREBRAL DISORDER [None]
  - DEPRESSION [None]
  - DISORIENTATION [None]
  - IRRITABILITY [None]
  - PHOTOPSIA [None]
